FAERS Safety Report 23905322 (Version 1)
Quarter: 2024Q2

REPORT INFORMATION
  Report Type: Spontaneous
  Country: US (occurrence: US)
  Receive Date: 20240527
  Receipt Date: 20240527
  Transmission Date: 20240716
  Serious: No
  Sender: FDA-Public Use
  Company Number: US-BRISTOL-MYERS SQUIBB COMPANY-2024-077224

PATIENT
  Age: 89 Year
  Sex: Female

DRUGS (2)
  1. ELIQUIS [Suspect]
     Active Substance: APIXABAN
     Indication: Product used for unknown indication
     Dosage: DOSE : UNKNOWN;     FREQ : ONE TABLET TWICE DAILY
     Route: 048
  2. ELIQUIS [Suspect]
     Active Substance: APIXABAN
     Dosage: DOSE : UNKNOWN;     FREQ : ONE TABLET TWICE DAILY
     Route: 048

REACTIONS (1)
  - Wrong technique in product usage process [Unknown]
